FAERS Safety Report 7297376-7 (Version None)
Quarter: 2011Q1

REPORT INFORMATION
  Report Type: 
  Country: None (occurrence: None)
  Receive Date: 20110204
  Receipt Date: 20110120
  Transmission Date: 20110831
  Serious: Yes (Hospitalization)
  Sender: FDA-Public Use
  Company Number: 1000018556

PATIENT
  Age: 94 Year
  Sex: Female

DRUGS (3)
  1. COOLMETEC (OLMESARTAN MEDOXOMIL, HYDORCHLOROTHIAZIDE) (20 MILLIGRAM, T [Concomitant]
  2. MEMANTINE HCL [Suspect]
     Dosage: 20 MG (20 MG,1 IN 1 D)
     Dates: start: 20100801
  3. ZOPICLONE (ZOPICLONE) (ZOPICLONE) [Concomitant]

REACTIONS (16)
  - SOMNOLENCE [None]
  - DECREASED APPETITE [None]
  - FALL [None]
  - PRODUCTIVE COUGH [None]
  - GENERAL PHYSICAL HEALTH DETERIORATION [None]
  - WOUND [None]
  - LUNG DISORDER [None]
  - HYPOTONIA [None]
  - DISTURBANCE IN ATTENTION [None]
  - CARDIAC FAILURE [None]
  - ERYTHEMA [None]
  - COMA [None]
  - ASTHENIA [None]
  - BRONCHIAL OBSTRUCTION [None]
  - WEIGHT LOSS POOR [None]
  - DEHYDRATION [None]
